FAERS Safety Report 13552420 (Version 1)
Quarter: 2020Q3

REPORT INFORMATION
  Report Type: Report from Study
  Country: ES (occurrence: ES)
  Receive Date: 20170517
  Receipt Date: 20170517
  Transmission Date: 20201105
  Serious: Yes (Death, Hospitalization)
  Sender: FDA-Public Use
  Company Number: ES-ASTRAZENECA-2016SE39157

PATIENT
  Age: 25054 Day
  Sex: Male

DRUGS (16)
  1. TREMELIMUMAB. [Suspect]
     Active Substance: TREMELIMUMAB
     Indication: NON-SMALL CELL LUNG CANCER
     Dosage: Q4W
     Route: 042
     Dates: start: 20160329, end: 20160329
  2. MUPIROCIN. [Concomitant]
     Active Substance: MUPIROCIN
     Route: 058
     Dates: start: 20160129
  3. AUGMENTINE [Concomitant]
     Active Substance: AMOXICILLIN\CLAVULANATE POTASSIUM
     Indication: RASH
     Dosage: 1 TABLET, TID
     Route: 048
     Dates: start: 20160204
  4. ENOXAPARIN SODIUM. [Concomitant]
     Active Substance: ENOXAPARIN SODIUM
     Indication: THROMBOSIS PROPHYLAXIS
     Route: 058
     Dates: start: 20160329
  5. MEDI4736 [Suspect]
     Active Substance: DURVALUMAB
     Indication: NON-SMALL CELL LUNG CANCER
     Dosage: Q4W
     Route: 042
     Dates: start: 20160201, end: 20160201
  6. MEDI4736 [Suspect]
     Active Substance: DURVALUMAB
     Indication: NON-SMALL CELL LUNG CANCER
     Dosage: Q4W
     Route: 042
     Dates: start: 20160229, end: 20160229
  7. MEDI4736 [Suspect]
     Active Substance: DURVALUMAB
     Indication: NON-SMALL CELL LUNG CANCER
     Dosage: Q4W
     Route: 042
     Dates: start: 20160329, end: 20160329
  8. N?ACETIL CISTEINA [Concomitant]
     Indication: ANTIVIRAL PROPHYLAXIS
     Route: 048
     Dates: start: 20160229
  9. NYSTATIN. [Concomitant]
     Active Substance: NYSTATIN
     Indication: MUCOSAL INFLAMMATION
     Dosage: 5 ML, TID
     Route: 048
     Dates: start: 20160229
  10. VASELINE PURE [Concomitant]
     Active Substance: PETROLATUM
     Indication: MUCOSAL INFLAMMATION
     Dosage: 1 OTHER, DAILY
     Route: 061
     Dates: start: 20160229
  11. TREMELIMUMAB. [Suspect]
     Active Substance: TREMELIMUMAB
     Indication: NON-SMALL CELL LUNG CANCER
     Dosage: Q4W
     Route: 042
     Dates: start: 20160201, end: 20160201
  12. METOCLOPRAMIDE. [Concomitant]
     Active Substance: METOCLOPRAMIDE
     Indication: NAUSEA
     Route: 048
     Dates: start: 20160129
  13. FERROUS SULFATE. [Concomitant]
     Active Substance: FERROUS SULFATE
     Indication: ANAEMIA
     Route: 048
     Dates: start: 20160329
  14. TREMELIMUMAB. [Suspect]
     Active Substance: TREMELIMUMAB
     Indication: NON-SMALL CELL LUNG CANCER
     Dosage: Q4W
     Route: 042
     Dates: start: 20160229, end: 20160229
  15. FORMOTEROL BECLOMETASONE [Concomitant]
     Indication: RESPIRATORY DISORDER
     Dates: start: 20160208
  16. BETAMETASONE [Concomitant]
     Active Substance: BETAMETHASONE
     Indication: RASH
     Dosage: 1, OTHER, APPLICATION, QD
     Route: 061
     Dates: start: 20160310

REACTIONS (1)
  - Pemphigoid [Recovering/Resolving]

NARRATIVE: CASE EVENT DATE: 20160411
